FAERS Safety Report 5338038-2 (Version None)
Quarter: 2007Q2

REPORT INFORMATION
  Report Type: 
  Country: None (occurrence: None)
  Receive Date: 20070530
  Receipt Date: 20070518
  Transmission Date: 20071010
  Serious: Yes (Other)
  Sender: FDA-Public Use
  Company Number: PHBS2007BR07303

PATIENT
  Sex: Male

DRUGS (2)
  1. TRILEPTAL [Suspect]
     Route: 065
  2. GARDAN TAB [Concomitant]

REACTIONS (3)
  - DEPRESSION [None]
  - EUPHORIC MOOD [None]
  - MOOD ALTERED [None]
